FAERS Safety Report 17949769 (Version 2)
Quarter: 2022Q2

REPORT INFORMATION
  Report Type: Spontaneous
  Country: US (occurrence: US)
  Receive Date: 20200626
  Receipt Date: 20220425
  Transmission Date: 20220721
  Serious: No
  Sender: FDA-Public Use
  Company Number: US-PFIZER INC-2019153905

PATIENT
  Age: 56 Year
  Sex: Male
  Weight: 95.238 kg

DRUGS (1)
  1. LYRICA [Suspect]
     Active Substance: PREGABALIN
     Indication: Neuralgia
     Dosage: 100 MG, 3X/DAY(TAKE 1 CAPSULE BY MOUTH 3 TIMES DAILY)
     Route: 048

REACTIONS (1)
  - Hypoacusis [Unknown]
